FAERS Safety Report 9298768 (Version 1)
Quarter: 2013Q2

REPORT INFORMATION
  Report Type: Spontaneous
  Country: US (occurrence: US)
  Receive Date: 20130520
  Receipt Date: 20130520
  Transmission Date: 20140414
  Serious: Yes (Other)
  Sender: FDA-Public Use
  Company Number: US-UCBSA-078809

PATIENT
  Age: 41 Year
  Sex: Female

DRUGS (1)
  1. CIMZIA [Suspect]
     Indication: CROHN^S DISEASE
     Dosage: LOT #88736; EXP DATE: ??/SEP/2015
     Dates: start: 20120718

REACTIONS (2)
  - Crohn^s disease [Not Recovered/Not Resolved]
  - Dysphagia [Not Recovered/Not Resolved]
